FAERS Safety Report 22348131 (Version 1)
Quarter: 2023Q2

REPORT INFORMATION
  Report Type: Report from Study
  Country: US (occurrence: US)
  Receive Date: 20230522
  Receipt Date: 20230522
  Transmission Date: 20230721
  Serious: No
  Sender: FDA-Public Use
  Company Number: US-UCBSA-2023025031

PATIENT
  Age: 18 Year
  Sex: Female

DRUGS (1)
  1. CERTOLIZUMAB PEGOL [Suspect]
     Active Substance: CERTOLIZUMAB PEGOL
     Indication: Product used for unknown indication
     Dosage: UNK
     Dates: start: 20230427

REACTIONS (4)
  - Erythema [Recovered/Resolved]
  - Paraesthesia [Recovered/Resolved]
  - Wrong technique in product usage process [Unknown]
  - Needle issue [Unknown]

NARRATIVE: CASE EVENT DATE: 20230511
